FAERS Safety Report 6761146-6 (Version None)
Quarter: 2010Q2

REPORT INFORMATION
  Report Type: 
  Country: None (occurrence: None)
  Receive Date: 20100608
  Receipt Date: 20100526
  Transmission Date: 20101027
  Serious: No
  Sender: FDA-Public Use
  Company Number: DE-ELI_LILLY_AND_COMPANY-DE201005007892

PATIENT
  Sex: Female
  Weight: 65 kg

DRUGS (2)
  1. ADCIRCA [Suspect]
     Indication: PULMONARY HYPERTENSION
     Dosage: 20 MG, 2/D
     Dates: start: 20100319
  2. ADCIRCA [Suspect]
     Dosage: 20 MG, 1/2 PER DAY

REACTIONS (4)
  - EPISTAXIS [None]
  - GASTROOESOPHAGEAL REFLUX DISEASE [None]
  - SENSATION OF HEAVINESS [None]
  - VISION BLURRED [None]
